FAERS Safety Report 20298845 (Version 1)
Quarter: 2022Q1

REPORT INFORMATION
  Report Type: Spontaneous
  Country: US (occurrence: None)
  Receive Date: 20220104
  Receipt Date: 20220104
  Transmission Date: 20220423
  Serious: No
  Sender: FDA-Public Use
  Company Number: None

PATIENT
  Age: 63 Year
  Sex: Female

DRUGS (1)
  1. CAPECITABINE [Suspect]
     Active Substance: CAPECITABINE
     Indication: Colon cancer
     Dosage: FREQUENCY : TWICE A DAY;?
     Route: 048
     Dates: start: 202108

REACTIONS (4)
  - Fine motor skill dysfunction [None]
  - Infusion related reaction [None]
  - Gait disturbance [None]
  - Ileostomy [None]

NARRATIVE: CASE EVENT DATE: 20211018
